FAERS Safety Report 7909134-8 (Version None)
Quarter: 2011Q4

REPORT INFORMATION
  Report Type: 
  Country: None (occurrence: None)
  Receive Date: 20111111
  Receipt Date: 20101027
  Transmission Date: 20120403
  Serious: No
  Sender: FDA-Public Use
  Company Number: US-GLAXOSMITHKLINE-A0889134A

PATIENT
  Age: 22 Year
  Sex: Female

DRUGS (4)
  1. LOESTRIN 1.5/30 [Concomitant]
  2. COREG [Suspect]
     Indication: POSTURAL ORTHOSTATIC TACHYCARDIA SYNDROME
     Dosage: 3.25MG AT NIGHT
     Route: 048
     Dates: start: 20100701
  3. CLONAZEPAM [Concomitant]
  4. COREG CR [Suspect]
     Indication: POSTURAL ORTHOSTATIC TACHYCARDIA SYNDROME
     Dosage: 40MG PER DAY
     Route: 048
     Dates: start: 20090901

REACTIONS (2)
  - ABDOMINAL DISCOMFORT [None]
  - BLOOD PRESSURE DECREASED [None]
